FAERS Safety Report 23605278 (Version 1)
Quarter: 2024Q1

REPORT INFORMATION
  Report Type: Spontaneous
  Country: IT (occurrence: IT)
  Receive Date: 20240307
  Receipt Date: 20240307
  Transmission Date: 20240409
  Serious: Yes (Other)
  Sender: FDA-Public Use
  Company Number: None

PATIENT
  Age: 65 Year
  Sex: Female
  Weight: 60 kg

DRUGS (4)
  1. FLUOROURACIL [Suspect]
     Active Substance: FLUOROURACIL
     Indication: Colon cancer metastatic
     Dosage: START OF THERAPY 08/21/2023 - THERAPY EVERY 14 DAYS - 6 CYCLE - BOLUS INFUSION.?5-FLUOROURACIL AL...
     Route: 042
     Dates: start: 20231215, end: 20231215
  2. AFLIBERCEPT [Suspect]
     Active Substance: AFLIBERCEPT
     Indication: Colon cancer metastatic
     Dosage: START OF THERAPY 08/21/2023 - THERAPY EVERY 14 DAYS - 6 CYCLE
     Route: 042
     Dates: start: 20231215, end: 20231215
  3. IRINOTECAN [Suspect]
     Active Substance: IRINOTECAN
     Indication: Colon cancer metastatic
     Dosage: START OF THERAPY 08/21/2023 - THERAPY EVERY 14 DAYS - 6 CYCLE
     Route: 042
     Dates: start: 20231215, end: 20231215
  4. LEVOLEUCOVORIN [Concomitant]
     Active Substance: LEVOLEUCOVORIN
     Indication: Product used for unknown indication
     Dosage: ACIDO LEVO FOLINICO
     Route: 065

REACTIONS (4)
  - Haemoglobin decreased [Recovering/Resolving]
  - Leukopenia [Recovering/Resolving]
  - Red blood cell count decreased [Recovering/Resolving]
  - Thrombocytopenia [Recovering/Resolving]

NARRATIVE: CASE EVENT DATE: 20240115
